FAERS Safety Report 11166769 (Version 3)
Quarter: 2015Q2

REPORT INFORMATION
  Report Type: Spontaneous
  Country: AR (occurrence: AR)
  Receive Date: 20150605
  Receipt Date: 20150630
  Transmission Date: 20150821
  Serious: Yes (Disabling)
  Sender: FDA-Public Use
  Company Number: AR-ROCHE-1588817

PATIENT
  Age: 28 Year
  Sex: Female
  Weight: 58 kg

DRUGS (5)
  1. VINCRISTINE [Concomitant]
     Active Substance: VINCRISTINE
     Indication: LYMPHOMA
     Dosage: DURING 5 DAYS EVERY 21 DAYS
     Route: 042
     Dates: start: 20150406
  2. DOXORUBICIN [Concomitant]
     Active Substance: DOXORUBICIN
     Indication: LYMPHOMA
     Dosage: DURING 5 DAYS, EVERY 21 DAYS
     Route: 042
     Dates: start: 20150406
  3. ETOPOSIDE. [Concomitant]
     Active Substance: ETOPOSIDE
     Indication: LYMPHOMA
     Dosage: DURING 5 DAYS, EVERY 21 DAYS
     Route: 042
     Dates: start: 20150406
  4. CYCLOPHOSPHAMIDE. [Concomitant]
     Active Substance: CYCLOPHOSPHAMIDE
     Indication: LYMPHOMA
     Route: 042
     Dates: start: 20150406
  5. MABTHERA [Suspect]
     Active Substance: RITUXIMAB
     Indication: LYMPHOMA
     Dosage: 3RD CYCLE
     Route: 042
     Dates: start: 20150406, end: 20150512

REACTIONS (1)
  - Amnesia [Not Recovered/Not Resolved]

NARRATIVE: CASE EVENT DATE: 20150420
